FAERS Safety Report 7509302-3 (Version None)
Quarter: 2011Q2

REPORT INFORMATION
  Report Type: 
  Country: None (occurrence: None)
  Receive Date: 20110527
  Receipt Date: 20110517
  Transmission Date: 20111010
  Serious: Yes (Hospitalization)
  Sender: FDA-Public Use
  Company Number: US-ABBOTT-11P-163-0726695-00

PATIENT
  Age: 75 Year
  Sex: Male

DRUGS (14)
  1. LIPITOR [Concomitant]
     Indication: CARDIAC DISORDER
  2. PLAVIX [Concomitant]
     Indication: CARDIAC DISORDER
  3. NIASPAN [Concomitant]
     Indication: CARDIAC DISORDER
  4. GLUCOTROL XL [Concomitant]
     Indication: DIABETES MELLITUS
  5. DAILY VITAMIN [Concomitant]
     Indication: PRODUCT USED FOR UNKNOWN INDICATION
  6. LEXAPRO [Concomitant]
     Indication: CARDIAC DISORDER
  7. FISH OIL [Concomitant]
     Indication: CARDIAC DISORDER
  8. ASPIRIN [Concomitant]
     Indication: CARDIAC DISORDER
  9. ASCORBIC ACID [Concomitant]
     Indication: PRODUCT USED FOR UNKNOWN INDICATION
  10. ARAVA [Concomitant]
     Indication: RHEUMATOID ARTHRITIS
  11. HUMIRA [Suspect]
     Indication: RHEUMATOID ARTHRITIS
  12. SLEEPING [Concomitant]
     Indication: PRODUCT USED FOR UNKNOWN INDICATION
     Dosage: PILL
  13. BISOPROLOL FUMARATE [Concomitant]
     Indication: CARDIAC DISORDER
  14. LAXATIVES [Concomitant]
     Indication: PRODUCT USED FOR UNKNOWN INDICATION

REACTIONS (7)
  - HYPERSENSITIVITY [None]
  - POSTOPERATIVE WOUND INFECTION [None]
  - BACK DISORDER [None]
  - SPINAL COLUMN STENOSIS [None]
  - PROSTATOMEGALY [None]
  - BRONCHITIS [None]
  - COUGH [None]
